FAERS Safety Report 7359314-8 (Version None)
Quarter: 2011Q1

REPORT INFORMATION
  Report Type: 
  Country: None (occurrence: None)
  Receive Date: 20110317
  Receipt Date: 20091007
  Transmission Date: 20110831
  Serious: No
  Sender: FDA-Public Use
  Company Number: US-PFIZER INC-2009271247

PATIENT
  Sex: Female
  Weight: 45.4 kg

DRUGS (2)
  1. NORVASC [Suspect]
     Indication: HYPERTENSION
     Dosage: 5 MG, 2X/DAY
     Route: 048
  2. AMBIEN [Concomitant]
     Indication: INSOMNIA

REACTIONS (1)
  - BLOOD PRESSURE INADEQUATELY CONTROLLED [None]
